FAERS Safety Report 9565912 (Version 1)
Quarter: 2013Q3

REPORT INFORMATION
  Report Type: Spontaneous
  Country: US (occurrence: US)
  Receive Date: 20130930
  Receipt Date: 20130930
  Transmission Date: 20140515
  Serious: Yes (Hospitalization, Other)
  Sender: FDA-Public Use
  Company Number: US-TEVA-434536USA

PATIENT
  Age: 14 Year
  Sex: Female

DRUGS (13)
  1. OLANZAPINE [Suspect]
     Indication: HALLUCINATION, AUDITORY
     Dosage: 2.5MG; INCREASED TO 5MG 2D LATER
     Route: 065
  2. OLANZAPINE [Suspect]
     Indication: ANXIETY
     Dosage: 2.5MG; INCREASED TO 5MG 2D LATER
     Route: 065
  3. OLANZAPINE [Suspect]
     Indication: HALLUCINATION, AUDITORY
     Dosage: 5MG
     Route: 065
  4. OLANZAPINE [Suspect]
     Indication: ANXIETY
     Dosage: 5MG
     Route: 065
  5. ZOLPIDEM [Suspect]
     Indication: INSOMNIA
     Route: 065
  6. ZOLPIDEM [Suspect]
     Indication: NIGHTMARE
     Route: 065
  7. MELATONIN [Suspect]
     Indication: INSOMNIA
     Route: 065
  8. MELATONIN [Suspect]
     Indication: NIGHTMARE
     Route: 065
  9. ESZOPICLONE [Suspect]
     Indication: INSOMNIA
     Route: 065
  10. ESZOPICLONE [Suspect]
     Indication: NIGHTMARE
     Route: 065
  11. DESMOPRESSIN [Concomitant]
     Route: 065
  12. CITALOPRAM [Concomitant]
     Dosage: 5MG; TITRATED TO 15MG OVER 5D
     Route: 065
  13. CITALOPRAM [Concomitant]
     Dosage: 15MG
     Route: 065

REACTIONS (6)
  - Sleep terror [Recovering/Resolving]
  - Abnormal dreams [Recovering/Resolving]
  - Anxiety [Recovering/Resolving]
  - Insomnia [Recovering/Resolving]
  - Mental impairment [Recovering/Resolving]
  - Weight increased [Unknown]
